FAERS Safety Report 9410188 (Version 1)
Quarter: 2013Q3

REPORT INFORMATION
  Report Type: Spontaneous
  Country: US (occurrence: US)
  Receive Date: 20130719
  Receipt Date: 20130719
  Transmission Date: 20140515
  Serious: No
  Sender: FDA-Public Use
  Company Number: US-US-EMD SERONO, INC.-7109728

PATIENT
  Sex: Female

DRUGS (4)
  1. REBIF [Suspect]
     Indication: MULTIPLE SCLEROSIS
     Route: 058
     Dates: start: 20120102
  2. REBIF [Suspect]
     Route: 058
  3. OXYCODONE [Concomitant]
     Indication: FIBROMYALGIA
  4. OXYCONTIN [Concomitant]
     Indication: FIBROMYALGIA

REACTIONS (7)
  - Sinusitis [Recovered/Resolved]
  - Viral infection [Recovered/Resolved]
  - Metrorrhagia [Not Recovered/Not Resolved]
  - Multiple sclerosis relapse [Not Recovered/Not Resolved]
  - Influenza like illness [Recovered/Resolved]
  - Injection site erythema [Unknown]
  - Injection site pain [Unknown]
